FAERS Safety Report 5693947-X (Version None)
Quarter: 2008Q2

REPORT INFORMATION
  Report Type: 
  Country: None (occurrence: None)
  Receive Date: 20080403
  Receipt Date: 20080306
  Transmission Date: 20081010
  Serious: No
  Sender: FDA-Public Use
  Company Number: US-BOEHRINGER INGELHEIM GMBH, GERMANY-2008-BP-02613BP

PATIENT
  Sex: Male

DRUGS (3)
  1. FLOMAX [Suspect]
     Indication: BENIGN PROSTATIC HYPERPLASIA
     Route: 048
     Dates: start: 20070716, end: 20080101
  2. FLOMAX [Suspect]
     Indication: NOCTURIA
  3. HYTRIN [Suspect]
     Indication: BENIGN PROSTATIC HYPERPLASIA

REACTIONS (2)
  - DRUG INEFFECTIVE [None]
  - NOCTURIA [None]
